FAERS Safety Report 5660097-8 (Version None)
Quarter: 2008Q1

REPORT INFORMATION
  Report Type: 
  Country: None (occurrence: None)
  Receive Date: 20080311
  Receipt Date: 20070910
  Transmission Date: 20080703
  Serious: No
  Sender: FDA-Public Use
  Company Number: US-BAYER-200712901BCC

PATIENT
  Age: 53 Year
  Sex: Female
  Weight: 82 kg

DRUGS (6)
  1. ALEVE [Suspect]
     Indication: HEADACHE
     Dosage: UNIT DOSE: 220 MG
     Route: 048
     Dates: start: 20070908
  2. TOPAMAX [Concomitant]
  3. SYNTHROID [Concomitant]
  4. GEODON [Concomitant]
  5. FIBER-LAX [Concomitant]
  6. DULCOLAX [Concomitant]

REACTIONS (1)
  - HEADACHE [None]
